FAERS Safety Report 15160722 (Version 1)
Quarter: 2018Q3

REPORT INFORMATION
  Report Type: Spontaneous
  Country: US (occurrence: US)
  Receive Date: 20180718
  Receipt Date: 20180718
  Transmission Date: 20181010
  Serious: No
  Sender: FDA-Public Use
  Company Number: US-CARDINAL HEALTH 418, INC.-2052331

PATIENT
  Age: 59 Year
  Sex: Female

DRUGS (1)
  1. SODIUM IODIDE I 123 [Suspect]
     Active Substance: SODIUM IODIDE I-123
     Indication: THYROID FUNCTION TEST
     Route: 048
     Dates: start: 20171102, end: 20171102

REACTIONS (4)
  - Nausea [Not Recovered/Not Resolved]
  - Dysgeusia [Not Recovered/Not Resolved]
  - Decreased appetite [Not Recovered/Not Resolved]
  - Iodine uptake increased [Not Recovered/Not Resolved]

NARRATIVE: CASE EVENT DATE: 20171102
